FAERS Safety Report 16667631 (Version 1)
Quarter: 2019Q3

REPORT INFORMATION
  Report Type: Report from Study
  Country: MX (occurrence: MX)
  Receive Date: 20190805
  Receipt Date: 20190805
  Transmission Date: 20191004
  Serious: Yes (Other)
  Sender: FDA-Public Use
  Company Number: MX-ORION CORPORATION ORION PHARMA-ENTC2019-0207

PATIENT
  Sex: Female
  Weight: 77 kg

DRUGS (2)
  1. STALEVO [Suspect]
     Active Substance: CARBIDOPA\ENTACAPONE\LEVODOPA
     Indication: MOVEMENT DISORDER
  2. STALEVO [Suspect]
     Active Substance: CARBIDOPA\ENTACAPONE\LEVODOPA
     Indication: MUSCULOSKELETAL STIFFNESS
     Route: 048

REACTIONS (7)
  - Malaise [Unknown]
  - Pain [Unknown]
  - Gait inability [Unknown]
  - Back pain [Unknown]
  - Arthralgia [Unknown]
  - Diabetes mellitus [Unknown]
  - Product use in unapproved indication [Unknown]
